FAERS Safety Report 9958991 (Version 2)
Quarter: 2014Q1

REPORT INFORMATION
  Report Type: Report from Study
  Country: US (occurrence: US)
  Receive Date: 20140305
  Receipt Date: 20140305
  Transmission Date: 20141002
  Serious: No
  Sender: FDA-Public Use
  Company Number: US-ABBVIE-13P-163-1088056-00

PATIENT
  Age: 52 Year
  Sex: Female

DRUGS (6)
  1. HUMIRA [Suspect]
     Indication: COLITIS ULCERATIVE
     Dates: start: 20130425
  2. ALEVE [Concomitant]
     Indication: BACK PAIN
  3. AZASAN [Concomitant]
     Indication: COLITIS ULCERATIVE
  4. LIALDA [Concomitant]
     Indication: COLITIS ULCERATIVE
  5. CANASA [Concomitant]
     Indication: COLITIS ULCERATIVE
     Dosage: EVERY HS
     Route: 054
  6. TYLENOL EXTRA STRENGTH [Concomitant]
     Indication: BACK PAIN

REACTIONS (2)
  - Herpes zoster [Recovering/Resolving]
  - Musculoskeletal pain [Not Recovered/Not Resolved]
